FAERS Safety Report 5441314-6 (Version None)
Quarter: 2007Q3

REPORT INFORMATION
  Report Type: 
  Country: None (occurrence: None)
  Receive Date: 20070903
  Receipt Date: 20070823
  Transmission Date: 20080115
  Serious: Yes (Hospitalization)
  Sender: FDA-Public Use
  Company Number: PHHO2007AT11374

PATIENT
  Age: 34 Year
  Sex: Male

DRUGS (2)
  1. NEORAL [Suspect]
     Indication: LIVER TRANSPLANT
     Dosage: 250 MG / DAY
     Route: 048
     Dates: start: 20060926
  2. RAD001 [Suspect]
     Indication: LIVER TRANSPLANT
     Dosage: NO TREATMENT

REACTIONS (2)
  - HEPATITIS [None]
  - LIVER TRANSPLANT REJECTION [None]
